FAERS Safety Report 22125960 (Version 1)
Quarter: 2023Q1

REPORT INFORMATION
  Report Type: Spontaneous
  Country: US (occurrence: US)
  Receive Date: 20230322
  Receipt Date: 20230322
  Transmission Date: 20230417
  Serious: Yes (Hospitalization, Other)
  Sender: FDA-Public Use
  Company Number: US-BRISTOL-MYERS SQUIBB COMPANY-2023-040663

PATIENT
  Age: 76 Year
  Sex: Male

DRUGS (1)
  1. REVLIMID [Suspect]
     Active Substance: LENALIDOMIDE
     Indication: Plasma cell myeloma
     Dosage: DOSE : 10MG;     FREQ : DAILY  21 DAYS ON 7 DAYS OFF
     Route: 048
     Dates: start: 20230111

REACTIONS (3)
  - Spinal fracture [Unknown]
  - Agitation [Unknown]
  - Failure to thrive [Unknown]

NARRATIVE: CASE EVENT DATE: 20230227
